FAERS Safety Report 6474218-0 (Version None)
Quarter: 2009Q4

REPORT INFORMATION
  Report Type: 
  Country: None (occurrence: None)
  Receive Date: 20091204
  Receipt Date: 20091124
  Transmission Date: 20100525
  Serious: Yes (Hospitalization)
  Sender: FDA-Public Use
  Company Number: US-ELI_LILLY_AND_COMPANY-US200910007853

PATIENT
  Sex: Female

DRUGS (16)
  1. FORTEO [Suspect]
     Indication: OSTEOPOROSIS
     Dosage: UNK, UNK
     Dates: start: 20090101, end: 20090908
  2. BACLOFEN [Concomitant]
  3. PLAVIX [Concomitant]
  4. CELEXA [Concomitant]
  5. SYNTHROID [Concomitant]
  6. LOVASTATIN [Concomitant]
  7. ALTACE [Concomitant]
  8. TRAZODONE HCL [Concomitant]
  9. DIURIL [Concomitant]
  10. PRILOSEC [Concomitant]
  11. TIZANIDINE HCL [Concomitant]
  12. CROMOLYN SODIUM [Concomitant]
  13. FLOVENT [Concomitant]
  14. VITAMIN D [Concomitant]
     Dosage: UNK, DAILY (1/D)
  15. OMEGA [Concomitant]
  16. CALCIUM [Concomitant]

REACTIONS (3)
  - DEHYDRATION [None]
  - NAUSEA [None]
  - VOMITING [None]
